FAERS Safety Report 4772802-3 (Version None)
Quarter: 2005Q3

REPORT INFORMATION
  Report Type: 
  Country: None (occurrence: None)
  Receive Date: 20050915
  Receipt Date: 20050915
  Transmission Date: 20060218
  Serious: Yes (Hospitalization)
  Sender: FDA-Public Use
  Company Number: None

PATIENT
  Age: 60 Year
  Sex: Male
  Weight: 99 kg

DRUGS (10)
  1. WARFARIN SODIUM [Suspect]
     Indication: ANTICOAGULANT THERAPY
     Dosage: 5MG PO DAILY
     Route: 048
  2. ASPIRIN [Suspect]
     Indication: ANTIPLATELET THERAPY
     Dosage: 81MG PO DAILY
     Route: 048
  3. POTASSIUM CHLORIDE [Concomitant]
  4. LASIX [Concomitant]
  5. LUPRON [Concomitant]
  6. CARDIZEM LA [Concomitant]
  7. COUMADIN [Concomitant]
  8. ECOTRIN [Concomitant]
  9. MULTIVIT [Concomitant]
  10. KEFLEX [Concomitant]

REACTIONS (4)
  - EPISTAXIS [None]
  - INTERNATIONAL NORMALISED RATIO ABNORMAL [None]
  - INTERNATIONAL NORMALISED RATIO INCREASED [None]
  - SINUSITIS [None]
